FAERS Safety Report 5970026-5 (Version None)
Quarter: 2008Q4

REPORT INFORMATION
  Report Type: 
  Country: None (occurrence: None)
  Receive Date: 20081126
  Receipt Date: 20081120
  Transmission Date: 20090506
  Serious: Yes (Hospitalization, Disabling)
  Sender: FDA-Public Use
  Company Number: US-MERCK-0702USA00317

PATIENT
  Age: 64 Year
  Sex: Female
  Weight: 61 kg

DRUGS (4)
  1. FOSAMAX [Suspect]
     Indication: OSTEOPOROSIS
     Route: 048
     Dates: start: 20020101, end: 20050901
  2. FOSAMAX [Suspect]
     Route: 048
     Dates: start: 20020101, end: 20050901
  3. LIPITOR [Concomitant]
     Indication: HYPERLIPIDAEMIA
     Route: 048
     Dates: start: 20000101
  4. HYDROCHLOROTHIAZIDE [Concomitant]
     Indication: HYPERTENSION
     Route: 065
     Dates: start: 20030101

REACTIONS (12)
  - BACTERIAL SEPSIS [None]
  - DIVERTICULUM INTESTINAL [None]
  - FISTULA [None]
  - GASTRITIS [None]
  - GASTROINTESTINAL TRACT ADENOMA [None]
  - HYPERCHOLESTEROLAEMIA [None]
  - INFECTION [None]
  - OSTEOMYELITIS [None]
  - OSTEOMYELITIS CHRONIC [None]
  - OSTEONECROSIS [None]
  - PATELLA FRACTURE [None]
  - RENAL FAILURE CHRONIC [None]
